FAERS Safety Report 8271004-6 (Version None)
Quarter: 2012Q2

REPORT INFORMATION
  Report Type: 
  Country: None (occurrence: None)
  Receive Date: 20120410
  Receipt Date: 20120402
  Transmission Date: 20120825
  Serious: Yes (Hospitalization)
  Sender: FDA-Public Use
  Company Number: US-BAYER-2012-032578

PATIENT
  Age: 35 Year
  Sex: Female

DRUGS (8)
  1. CRANBERRY [Concomitant]
     Route: 048
  2. DROSPIRENONE AND ETHINYL ESTRADIOL [Suspect]
     Route: 048
  3. ASPIRIN [Concomitant]
     Indication: CARDIOVASCULAR EVENT PROPHYLAXIS
     Dosage: 81 MG, QD
     Route: 048
  4. ASCORBIC ACID [Concomitant]
     Route: 048
  5. FLUCONAZOLE [Concomitant]
     Dosage: 150 MG, UNK
     Route: 048
     Dates: start: 20111219
  6. SULFAMETHOXAZOLE AND TRIMETHOPRIM [Concomitant]
     Dosage: 800-160
     Route: 048
     Dates: start: 20111219
  7. IBUPROFEN [Concomitant]
     Indication: CHEST PAIN
     Dosage: 1200 MG, UNK
     Route: 048
  8. YAZ [Suspect]
     Route: 048

REACTIONS (1)
  - PULMONARY EMBOLISM [None]
